FAERS Safety Report 9686073 (Version 2)
Quarter: 2013Q4

REPORT INFORMATION
  Report Type: Spontaneous
  Country: US (occurrence: US)
  Receive Date: 20131113
  Receipt Date: 20131113
  Transmission Date: 20140711
  Serious: No
  Sender: FDA-Public Use
  Company Number: US-ALLERGAN-1216786US

PATIENT
  Age: 83 Year
  Sex: Female

DRUGS (3)
  1. COMBIGAN[R] [Suspect]
     Indication: INTRAOCULAR PRESSURE INCREASED
     Dosage: 2 GTT, BID
     Route: 047
     Dates: start: 201211
  2. BLOOD PRESSURE MEDICINE NOS [Concomitant]
     Indication: HYPERTENSION
     Dosage: UNK, QD
     Route: 048
     Dates: start: 2012
  3. LATANOPROST [Concomitant]
     Indication: INTRAOCULAR PRESSURE INCREASED
     Dosage: 1 GTT, QHS
     Route: 047

REACTIONS (2)
  - Eye irritation [Not Recovered/Not Resolved]
  - Eye pruritus [Not Recovered/Not Resolved]
